FAERS Safety Report 22195162 (Version 1)
Quarter: 2023Q2

REPORT INFORMATION
  Report Type: Spontaneous
  Country: CA (occurrence: CA)
  Receive Date: 20230411
  Receipt Date: 20230411
  Transmission Date: 20230722
  Serious: Yes (Other)
  Sender: FDA-Public Use
  Company Number: CA-CELLTRION INC.-2022CA006540

PATIENT

DRUGS (11)
  1. INFLECTRA [Suspect]
     Active Substance: INFLIXIMAB-DYYB
     Indication: Crohn^s disease
     Dosage: 5 MG/KG, AT 0, 2, 6 WEEK, THEN EVERY 8 WEEKS
     Route: 041
     Dates: start: 20220311
  2. INFLECTRA [Suspect]
     Active Substance: INFLIXIMAB-DYYB
     Dosage: 5 MG/KG, AT 0, 2, 6 WEEK, THEN EVERY 8 WEEKS
     Route: 041
     Dates: start: 20220331
  3. INFLECTRA [Suspect]
     Active Substance: INFLIXIMAB-DYYB
     Dosage: 5 MG/KG , 0, 2, 6 WEEK, THEN EVERY 8 WEEKS
     Route: 041
     Dates: start: 20220825
  4. INFLECTRA [Suspect]
     Active Substance: INFLIXIMAB-DYYB
     Dosage: 285 MG (5 MG/KG , 0, 2, 6 WEEK, THEN EVERY 8 WEEKS)
     Route: 041
     Dates: start: 20230131
  5. INFLECTRA [Suspect]
     Active Substance: INFLIXIMAB-DYYB
     Dosage: 285 MG (5 MG/KG , 0, 2, 6 WEEK, THEN EVERY 8 WEEKS)
     Route: 041
     Dates: start: 20230131
  6. INFLECTRA [Suspect]
     Active Substance: INFLIXIMAB-DYYB
     Dosage: 300 MG (SUPPOSED TO RECEIVE 5MG/KG (345MG)), 0, 2, 6 WEEK, THEN EVERY 8 WEEKS)
     Route: 041
     Dates: start: 20230328
  7. CALCIUM [Concomitant]
     Active Substance: CALCIUM
     Dosage: 1 DF
  8. CANNABIS SATIVA SUBSP. INDICA TOP [Concomitant]
     Active Substance: CANNABIS SATIVA SUBSP. INDICA TOP
     Dosage: 1 DF
  9. DILAUDID [Concomitant]
     Active Substance: HYDROMORPHONE HYDROCHLORIDE
     Dosage: 3 MG, 3X/DAY
  10. HALDOL [Concomitant]
     Active Substance: HALOPERIDOL
     Dosage: 1 DF
  11. PREDNISONE [Concomitant]
     Active Substance: PREDNISONE
     Dosage: 1 DF ,DOSAGE INFORMATION NOT AVAILABLE
     Route: 065

REACTIONS (4)
  - Weight increased [Not Recovered/Not Resolved]
  - Incorrect dose administered [Unknown]
  - Inappropriate schedule of product administration [Unknown]
  - Blood pressure decreased [Unknown]

NARRATIVE: CASE EVENT DATE: 20220331
